FAERS Safety Report 22807717 (Version 3)
Quarter: 2023Q4

REPORT INFORMATION
  Report Type: Spontaneous
  Country: DE (occurrence: DE)
  Receive Date: 20230810
  Receipt Date: 20231017
  Transmission Date: 20240109
  Serious: Yes (Other)
  Sender: FDA-Public Use
  Company Number: DE-BRISTOL-MYERS SQUIBB COMPANY-2023-053571

PATIENT
  Age: 35 Year
  Sex: Female
  Weight: 57 kg

DRUGS (1)
  1. OPDIVO [Suspect]
     Active Substance: NIVOLUMAB
     Indication: Malignant melanoma stage IV
     Route: 042
     Dates: start: 202107, end: 20220421

REACTIONS (5)
  - Maternal exposure during pregnancy [Recovered/Resolved]
  - Cholestasis of pregnancy [Recovered/Resolved]
  - Premature delivery [Unknown]
  - Twin pregnancy [Unknown]
  - Pregnancy with contraceptive device [Unknown]

NARRATIVE: CASE EVENT DATE: 20221015
